FAERS Safety Report 24793244 (Version 1)
Quarter: 2024Q4

REPORT INFORMATION
  Report Type: Spontaneous
  Country: US (occurrence: None)
  Receive Date: 20241230
  Receipt Date: 20241230
  Transmission Date: 20250115
  Serious: No
  Sender: Public
  Company Number: None

PATIENT
  Age: 29 Year
  Sex: Female

DRUGS (3)
  1. STELARA [Suspect]
     Active Substance: USTEKINUMAB
     Indication: Colitis ulcerative
     Dosage: FREQUENCY : EVERY OTHER WEEK;?
     Route: 058
     Dates: start: 202406
  2. STELARA [Suspect]
     Active Substance: USTEKINUMAB
     Indication: Rectal haemorrhage
  3. STELARA [Suspect]
     Active Substance: USTEKINUMAB
     Indication: Rectal haemorrhage

REACTIONS (3)
  - Colitis ulcerative [None]
  - Condition aggravated [None]
  - Maternal exposure during pregnancy [None]

NARRATIVE: CASE EVENT DATE: 20241219
